FAERS Safety Report 4959727-5 (Version None)
Quarter: 2006Q1

REPORT INFORMATION
  Report Type: 
  Country: None (occurrence: None)
  Receive Date: 20060331
  Receipt Date: 20060320
  Transmission Date: 20060701
  Serious: Yes (Death)
  Sender: FDA-Public Use
  Company Number: US-JNJFOC-20060203231

PATIENT
  Sex: Male
  Weight: 106.6 kg

DRUGS (4)
  1. DURAGESIC-100 [Suspect]
     Indication: DRUG USE FOR UNKNOWN INDICATION
     Route: 062
  2. PERCOCET [Suspect]
  3. PERCOCET [Suspect]
     Indication: DRUG USE FOR UNKNOWN INDICATION
  4. TOPAMAX [Suspect]
     Indication: NEURALGIA
     Route: 048

REACTIONS (1)
  - MULTIPLE DRUG OVERDOSE [None]
